FAERS Safety Report 16449815 (Version 5)
Quarter: 2020Q1

REPORT INFORMATION
  Report Type: Spontaneous
  Country: BR (occurrence: BR)
  Receive Date: 20190619
  Receipt Date: 20200321
  Transmission Date: 20200409
  Serious: Yes (Hospitalization)
  Sender: FDA-Public Use
  Company Number: BR-AMGEN-BRASP2018014540

PATIENT
  Age: 46 Year
  Sex: Male
  Weight: 98 kg

DRUGS (8)
  1. VENZER [Concomitant]
     Dosage: UNK
  2. SERTRALINE [Concomitant]
     Active Substance: SERTRALINE HYDROCHLORIDE
     Dosage: UNK
  3. ENBREL [Suspect]
     Active Substance: ETANERCEPT
     Indication: RHEUMATOID ARTHRITIS
     Dosage: 25 MILLIGRAM, 2 TIMES/WK
     Route: 065
     Dates: start: 2004, end: 201912
  4. CLONAZEPAM. [Concomitant]
     Active Substance: CLONAZEPAM
     Dosage: UNK
  5. ENBREL [Suspect]
     Active Substance: ETANERCEPT
     Indication: PSORIASIS
     Dosage: UNK
     Route: 065
  6. ATENSINA [Concomitant]
     Active Substance: CLONIDINE
     Dosage: UNK
     Dates: start: 201903
  7. CALTREN [Concomitant]
     Active Substance: NITRENDIPINE
     Dosage: UNK
  8. APRESOLINA [Concomitant]
     Active Substance: HYDRALAZINE HYDROCHLORIDE
     Dosage: UNK

REACTIONS (6)
  - Blood potassium decreased [Recovered/Resolved]
  - Pharyngitis [Recovered/Resolved]
  - Influenza [Unknown]
  - Blood pressure abnormal [Unknown]
  - Sinusitis [Recovered/Resolved]
  - Oropharyngeal pain [Unknown]

NARRATIVE: CASE EVENT DATE: 2019
